FAERS Safety Report 19672951 (Version 6)
Quarter: 2021Q4

REPORT INFORMATION
  Report Type: Report from Study
  Country: HN (occurrence: HN)
  Receive Date: 20210809
  Receipt Date: 20211019
  Transmission Date: 20220303
  Serious: Yes (Life-Threatening)
  Sender: FDA-Public Use
  Company Number: NVSC2021HN164945

PATIENT
  Sex: Male

DRUGS (3)
  1. SECUKINUMAB [Suspect]
     Active Substance: SECUKINUMAB
     Indication: Ankylosing spondylitis
     Dosage: 150 MG, QMO
     Route: 058
     Dates: start: 20210613
  2. SECUKINUMAB [Suspect]
     Active Substance: SECUKINUMAB
     Dosage: 150 MG, QMO (BENEATH THE SKIN, USUALLY VIA INJECTION)
     Route: 058
     Dates: start: 20210713
  3. AMLODIPINE [Concomitant]
     Active Substance: AMLODIPINE BESYLATE
     Indication: Hypertension
     Dosage: 5 MG
     Route: 048
     Dates: start: 202105

REACTIONS (28)
  - Feeling abnormal [Unknown]
  - Renal cyst [Unknown]
  - Fatigue [Unknown]
  - Swelling [Unknown]
  - Inflammation [Not Recovered/Not Resolved]
  - Disease recurrence [Recovering/Resolving]
  - Pain [Unknown]
  - Discomfort [Unknown]
  - Bone pain [Not Recovered/Not Resolved]
  - Blood creatinine increased [Unknown]
  - Malaise [Unknown]
  - Back pain [Unknown]
  - Dizziness [Not Recovered/Not Resolved]
  - Somnolence [Unknown]
  - Haemoglobin decreased [Unknown]
  - Asthenia [Unknown]
  - Neck pain [Unknown]
  - Feeling hot [Unknown]
  - Feeding disorder [Unknown]
  - Dysstasia [Recovering/Resolving]
  - Blood uric acid increased [Unknown]
  - Blood urea increased [Unknown]
  - Balance disorder [Unknown]
  - Illness [Unknown]
  - Headache [Unknown]
  - Pain in extremity [Unknown]
  - Gait disturbance [Recovering/Resolving]
  - Drug ineffective [Not Recovered/Not Resolved]
